FAERS Safety Report 7042563-6 (Version None)
Quarter: 2010Q4

REPORT INFORMATION
  Report Type: 
  Country: None (occurrence: None)
  Receive Date: 20101013
  Receipt Date: 20090930
  Transmission Date: 20110411
  Serious: No
  Sender: FDA-Public Use
  Company Number: US-ASTRAZENECA-2009SE16943

PATIENT
  Age: 25660 Day
  Sex: Female

DRUGS (1)
  1. SYMBICORT [Suspect]
     Dosage: 160/4.5 TWO PUFFS TWICE A DAY
     Route: 055
     Dates: start: 20090916, end: 20090923

REACTIONS (3)
  - COUGH [None]
  - DRUG INEFFECTIVE [None]
  - WHEEZING [None]
